FAERS Safety Report 22621234 (Version 1)
Quarter: 2023Q2

REPORT INFORMATION
  Report Type: Spontaneous
  Country: EG (occurrence: EG)
  Receive Date: 20230620
  Receipt Date: 20230620
  Transmission Date: 20230721
  Serious: Yes (Death, Hospitalization)
  Sender: FDA-Public Use
  Company Number: EG-PFIZER INC-PV202300105593

PATIENT
  Age: 75 Year
  Sex: Female
  Weight: 85 kg

DRUGS (3)
  1. ZYVOX [Suspect]
     Active Substance: LINEZOLID
     Indication: Septic shock
     Dosage: 600 MG, EVERY 12 HOURS
     Route: 042
     Dates: start: 20220425, end: 20220430
  2. ZYVOX [Suspect]
     Active Substance: LINEZOLID
     Indication: Procalcitonin increased
  3. HEPARIN [Suspect]
     Active Substance: HEPARIN SODIUM
     Dosage: 5000 IU, EVERY 12 HOURS
     Route: 058
     Dates: start: 20220428, end: 20220430

REACTIONS (6)
  - Platelet count decreased [Fatal]
  - Gastric ulcer [Fatal]
  - Oesophageal ulcer [Fatal]
  - Pemphigus [Fatal]
  - Haemoglobin decreased [Fatal]
  - Oxygen saturation decreased [Fatal]

NARRATIVE: CASE EVENT DATE: 20220430
